FAERS Safety Report 9291237 (Version 1)
Quarter: 2013Q2

REPORT INFORMATION
  Report Type: Spontaneous
  Country: US (occurrence: US)
  Receive Date: 20130515
  Receipt Date: 20130515
  Transmission Date: 20140414
  Serious: No
  Sender: FDA-Public Use
  Company Number: US-PFIZER INC-2013146811

PATIENT
  Age: 43 Year
  Sex: Female
  Weight: 72.6 kg

DRUGS (1)
  1. LEVOXYL [Suspect]
     Indication: HYPOTHYROIDISM
     Dosage: 50 UG, 1X/DAY
     Dates: start: 2012

REACTIONS (2)
  - Pre-existing condition improved [Unknown]
  - Therapeutic response unexpected [Unknown]
